FAERS Safety Report 5859312-7 (Version None)
Quarter: 2008Q3

REPORT INFORMATION
  Report Type: 
  Country: None (occurrence: None)
  Receive Date: 20080826
  Receipt Date: 20080826
  Transmission Date: 20090109
  Serious: Yes (Life-Threatening)
  Sender: FDA-Public Use
  Company Number: None

PATIENT
  Age: 22 Year
  Sex: Female
  Weight: 76 kg

DRUGS (1)
  1. ETHINYL ESTRADIOL/ETONOGESTREL [Suspect]
     Indication: CONTRACEPTION
     Dates: start: 20080423, end: 20080616

REACTIONS (5)
  - CEREBRAL THROMBOSIS [None]
  - HEADACHE [None]
  - NAUSEA [None]
  - NECK PAIN [None]
  - PHOTOPHOBIA [None]
